FAERS Safety Report 21928053 (Version 1)
Quarter: 2023Q1

REPORT INFORMATION
  Report Type: Spontaneous
  Country: IN (occurrence: IN)
  Receive Date: 20230130
  Receipt Date: 20230130
  Transmission Date: 20230418
  Serious: Yes (Other)
  Sender: FDA-Public Use
  Company Number: IN-ALXN-A202300851

PATIENT
  Age: 21 Year
  Sex: Male

DRUGS (2)
  1. ULTOMIRIS [Suspect]
     Active Substance: RAVULIZUMAB-CWVZ
     Indication: Off label use
     Dosage: 2700 MG, 8 WEEKLY
     Route: 065
  2. ULTOMIRIS [Suspect]
     Active Substance: RAVULIZUMAB-CWVZ
     Indication: C3 glomerulopathy
     Dosage: 3300 MG, UNK
     Route: 065

REACTIONS (4)
  - Glomerulosclerosis [Unknown]
  - Kidney fibrosis [Unknown]
  - Monoclonal immunoglobulin present [Unknown]
  - Off label use [Unknown]
